FAERS Safety Report 25140347 (Version 1)
Quarter: 2025Q1

REPORT INFORMATION
  Report Type: Spontaneous
  Country: US (occurrence: US)
  Receive Date: 20250331
  Receipt Date: 20250331
  Transmission Date: 20250408
  Serious: No
  Sender: MERCK SHARP & DOHME LLC
  Company Number: US-009507513-2261386

PATIENT
  Sex: Female

DRUGS (3)
  1. VORINOSTAT [Suspect]
     Active Substance: VORINOSTAT
     Indication: Blastic plasmacytoid dendritic cell neoplasia
  2. IDARUBICIN [Concomitant]
     Active Substance: IDARUBICIN
     Indication: Blastic plasmacytoid dendritic cell neoplasia
  3. CYTARABINE [Concomitant]
     Active Substance: CYTARABINE
     Indication: Blastic plasmacytoid dendritic cell neoplasia

REACTIONS (1)
  - Product use in unapproved indication [Unknown]
